FAERS Safety Report 8573307-4 (Version None)
Quarter: 2012Q3

REPORT INFORMATION
  Report Type: 
  Country: None (occurrence: None)
  Receive Date: 20120806
  Receipt Date: 20120529
  Transmission Date: 20120928
  Serious: No
  Sender: FDA-Public Use
  Company Number: US-009507513-2012SP035506

PATIENT

DRUGS (6)
  1. CLARITIN-D 24 HOUR [Suspect]
     Indication: MEDICAL OBSERVATION
     Dosage: 10 MG, QPM
     Route: 048
     Dates: start: 20120401
  2. SPIRIVA [Concomitant]
     Indication: CHRONIC OBSTRUCTIVE PULMONARY DISEASE
     Dosage: UNK, UNKNOWN
  3. LEVOTHYROXINE SODIUM [Concomitant]
     Indication: THYROID DISORDER
     Dosage: UNK, UNKNOWN
  4. SYMBICORT [Concomitant]
     Indication: CHRONIC OBSTRUCTIVE PULMONARY DISEASE
     Dosage: UNK, UNKNOWN
  5. CLARITIN-D 24 HOUR [Suspect]
     Indication: SINUS CONGESTION
  6. OXYMETAZOLINE HCL [Concomitant]
     Indication: PRODUCT USED FOR UNKNOWN INDICATION
     Dosage: UNK UNK, UNKNOWN

REACTIONS (2)
  - DYSPHAGIA [None]
  - THROAT TIGHTNESS [None]
